FAERS Safety Report 17450952 (Version 1)
Quarter: 2020Q1

REPORT INFORMATION
  Report Type: Spontaneous
  Country: US (occurrence: US)
  Receive Date: 20200224
  Receipt Date: 20200224
  Transmission Date: 20200409
  Serious: No
  Sender: FDA-Public Use
  Company Number: US-ASTRAZENECA-2020SE15552

PATIENT
  Age: 27557 Day
  Sex: Male
  Weight: 78.9 kg

DRUGS (2)
  1. LYNPARZA [Suspect]
     Active Substance: OLAPARIB
     Indication: COLON CANCER STAGE IV
     Route: 048
     Dates: start: 202001
  2. LYNPARZA [Suspect]
     Active Substance: OLAPARIB
     Indication: COLON CANCER STAGE IV
     Route: 048
     Dates: start: 202001

REACTIONS (2)
  - Petechiae [Not Recovered/Not Resolved]
  - Peripheral swelling [Not Recovered/Not Resolved]

NARRATIVE: CASE EVENT DATE: 20200104
